FAERS Safety Report 21159840 (Version 2)
Quarter: 2022Q4

REPORT INFORMATION
  Report Type: Spontaneous
  Country: DE (occurrence: DE)
  Receive Date: 20220802
  Receipt Date: 20221027
  Transmission Date: 20230113
  Serious: Yes (Other)
  Sender: FDA-Public Use
  Company Number: DE-NOVARTISPH-NVSC2022DE173665

PATIENT

DRUGS (1)
  1. ZOLGENSMA [Suspect]
     Active Substance: ONASEMNOGENE ABEPARVOVEC-XIOI
     Indication: Product used for unknown indication
     Dosage: UNK, ONCE/SINGLE
     Route: 042

REACTIONS (1)
  - Haematochezia [Unknown]
